FAERS Safety Report 22530021 (Version 2)
Quarter: 2023Q2

REPORT INFORMATION
  Report Type: Spontaneous
  Country: GB (occurrence: None)
  Receive Date: 20230607
  Receipt Date: 20230612
  Transmission Date: 20230722
  Serious: Yes (Death)
  Sender: FDA-Public Use
  Company Number: 2023A128495

PATIENT
  Age: 29281 Day
  Sex: Male
  Weight: 87 kg

DRUGS (6)
  1. DAPAGLIFLOZIN [Suspect]
     Active Substance: DAPAGLIFLOZIN
     Indication: Cardiac failure
     Route: 048
     Dates: start: 20220628, end: 20230530
  2. APIXABAN [Concomitant]
     Active Substance: APIXABAN
     Route: 048
     Dates: end: 20230530
  3. BISOPROLOL [Concomitant]
     Active Substance: BISOPROLOL
     Route: 048
     Dates: end: 20230530
  4. BUMETANIDE [Concomitant]
     Active Substance: BUMETANIDE
     Route: 048
     Dates: end: 20230530
  5. METFORMIN [Concomitant]
     Active Substance: METFORMIN HYDROCHLORIDE
     Indication: Type 2 diabetes mellitus
     Dates: end: 20230530
  6. SACUBITRIL\VALSARTAN [Concomitant]
     Active Substance: SACUBITRIL\VALSARTAN
     Indication: Cardiac failure
     Dosage: 97/103 MG DAILY
     Route: 048
     Dates: start: 20221026, end: 20230530

REACTIONS (1)
  - Death [Fatal]

NARRATIVE: CASE EVENT DATE: 20230530
